FAERS Safety Report 8264539-3 (Version None)
Quarter: 2012Q2

REPORT INFORMATION
  Report Type: 
  Country: None (occurrence: None)
  Receive Date: 20120406
  Receipt Date: 20120326
  Transmission Date: 20120825
  Serious: Yes (Other)
  Sender: FDA-Public Use
  Company Number: US-SANOFI-AVENTIS-2012SA020592

PATIENT
  Age: 80 Year
  Sex: Male

DRUGS (6)
  1. SOLOSTAR [Suspect]
  2. APIDRA [Suspect]
     Dosage: AT BREAKFAST DOSE:15 UNIT(S)
     Route: 058
     Dates: start: 20120101
  3. APIDRA [Suspect]
     Dosage: AT BREAKFAST DOSE:10 UNIT(S)
     Route: 058
     Dates: start: 20120101, end: 20120101
  4. SOLOSTAR [Suspect]
     Indication: TYPE 2 DIABETES MELLITUS
     Dates: start: 20120101
  5. LANTUS [Suspect]
     Indication: TYPE 2 DIABETES MELLITUS
     Dosage: DOSE:12 UNIT(S)
     Route: 058
  6. APIDRA [Suspect]
     Indication: TYPE 2 DIABETES MELLITUS
     Dosage: AT BREAKFAST DOSE:5 UNIT(S)
     Route: 058
     Dates: start: 20120101, end: 20120101

REACTIONS (5)
  - DEPRESSED LEVEL OF CONSCIOUSNESS [None]
  - DIPLOPIA [None]
  - CONFUSIONAL STATE [None]
  - BLOOD GLUCOSE INCREASED [None]
  - HYPERHIDROSIS [None]
